FAERS Safety Report 6449044-9 (Version None)
Quarter: 2009Q4

REPORT INFORMATION
  Report Type: 
  Country: None (occurrence: None)
  Receive Date: 20091120
  Receipt Date: 20091110
  Transmission Date: 20100525
  Serious: Yes (Hospitalization)
  Sender: FDA-Public Use
  Company Number: BE-ELI_LILLY_AND_COMPANY-BE200911003051

PATIENT
  Sex: Female
  Weight: 66 kg

DRUGS (8)
  1. GEMCITABINE HCL [Suspect]
     Indication: BREAST CANCER METASTATIC
     Dosage: ACTUAL DOSE 1730MG ON D1 AND 8 EVERY 3 WEEKS
     Route: 042
     Dates: start: 20091027
  2. VINFLUNINE [Suspect]
     Indication: BREAST CANCER METASTATIC
     Dosage: 320 MG/M2 (ACTUAL DOSE 553.6MG), ON D1 EVERY 3 WEEKS
     Route: 042
     Dates: start: 20091027
  3. LACTULOSE [Concomitant]
     Dates: start: 20091026
  4. DEXAMETHASONE [Concomitant]
     Dates: start: 20091027, end: 20091029
  5. MOVICOL /01053601/ [Concomitant]
     Dates: start: 20091028
  6. OMEPRAZOLE [Concomitant]
     Dates: start: 20091030
  7. CLOZAN [Concomitant]
     Dates: start: 20091030
  8. DOLZAM [Concomitant]
     Route: 042
     Dates: start: 20091030

REACTIONS (1)
  - ILEUS PARALYTIC [None]
